FAERS Safety Report 17636395 (Version 1)
Quarter: 2020Q2

REPORT INFORMATION
  Report Type: Spontaneous
  Country: US (occurrence: US)
  Receive Date: 20200407
  Receipt Date: 20200407
  Transmission Date: 20200713
  Serious: No
  Sender: FDA-Public Use
  Company Number: US-RECORDATI RARE DISEASES-2082423

PATIENT
  Age: 60 Year
  Sex: Female

DRUGS (3)
  1. CYSTADANE [Suspect]
     Active Substance: BETAINE
  2. CYSTADANE [Suspect]
     Active Substance: BETAINE
     Indication: PRODUCT USED FOR UNKNOWN INDICATION
  3. CYSTADANE [Suspect]
     Active Substance: BETAINE
     Dates: start: 2019, end: 201911

REACTIONS (6)
  - Pain in extremity [Unknown]
  - Middle insomnia [Unknown]
  - Musculoskeletal stiffness [Unknown]
  - Product dose omission [Unknown]
  - Bone pain [Unknown]
  - Treatment noncompliance [Unknown]

NARRATIVE: CASE EVENT DATE: 2019
